FAERS Safety Report 10676247 (Version 3)
Quarter: 2015Q1

REPORT INFORMATION
  Report Type: Report from Study
  Country: CA (occurrence: CA)
  Receive Date: 20141226
  Receipt Date: 20150127
  Transmission Date: 20150720
  Serious: Yes (Hospitalization)
  Sender: FDA-Public Use
  Company Number: CA-AMGEN-CANCT2014097135

PATIENT
  Age: 66 Year
  Sex: Male
  Weight: 72.9 kg

DRUGS (4)
  1. MEK 162 [Concomitant]
     Dosage: 45 MG, BID
     Route: 048
     Dates: start: 20141209
  2. IMODIUM [Concomitant]
     Active Substance: LOPERAMIDE HYDROCHLORIDE
     Dosage: UNK
     Dates: start: 20141016, end: 20141204
  3. MEK 162 [Concomitant]
     Indication: COLORECTAL CANCER METASTATIC
     Dosage: 45 MG, BID
     Route: 048
     Dates: start: 20141001, end: 20141205
  4. PANITUMUMAB [Suspect]
     Active Substance: PANITUMUMAB
     Indication: COLORECTAL CANCER METASTATIC
     Dosage: 6 MG/KG, UNK
     Route: 042
     Dates: start: 20141001, end: 20141126

REACTIONS (2)
  - Small intestinal obstruction [Recovered/Resolved]
  - Dehydration [Recovering/Resolving]

NARRATIVE: CASE EVENT DATE: 20141205
